FAERS Safety Report 7940216-0 (Version None)
Quarter: 2011Q4

REPORT INFORMATION
  Report Type: 
  Country: None (occurrence: None)
  Receive Date: 20111126
  Receipt Date: 20110918
  Transmission Date: 20120403
  Serious: No
  Sender: FDA-Public Use
  Company Number: US-BAYER-2011-091191

PATIENT

DRUGS (2)
  1. ALEVE (CAPLET) [Suspect]
     Dosage: 4 DF, ONCE
     Route: 048
     Dates: start: 20110901
  2. IBUPROFEN [Concomitant]
     Dosage: 2 DF, ONCE
     Route: 048
     Dates: start: 20110901

REACTIONS (1)
  - ABDOMINAL PAIN UPPER [None]
